FAERS Safety Report 8770701 (Version 1)
Quarter: 2012Q4

REPORT INFORMATION
  Report Type: 
  Country: MX (occurrence: MX)
  Receive Date: 20120906
  Receipt Date: 20120906
  Transmission Date: 20130627
  Serious: Yes (Hospitalization)
  Sender: FDA-Public Use
  Company Number: MX-SANOFI-AVENTIS-2012SA061895

PATIENT
  Age: 54 Year
  Sex: Female
  Weight: 65 kg

DRUGS (3)
  1. LANTUS [Suspect]
     Indication: TYPE 2 DIABETES MELLITUS
     Route: 058
     Dates: start: 201101
  2. LOSARTAN [Concomitant]
     Indication: HYPERTENSION ARTERIAL
     Dosage: Strength: 50 mg
     Route: 048
     Dates: start: 2004
  3. ATROVASTATIN [Concomitant]
     Indication: HYPERCHOLESTEROLEMIA
     Dosage: Strength: 20 mg
     Route: 048
     Dates: start: 2004

REACTIONS (3)
  - Renal neoplasm [Recovered/Resolved]
  - Haematuria [Recovered/Resolved]
  - Hyperglycaemia [Not Recovered/Not Resolved]
